FAERS Safety Report 12134480 (Version 1)
Quarter: 2016Q1

REPORT INFORMATION
  Report Type: Other
  Country: FR (occurrence: FR)
  Receive Date: 20160301
  Receipt Date: 20160301
  Transmission Date: 20160526
  Serious: Yes (Death)
  Sender: FDA-Public Use
  Company Number: FR-ENDO PHARMACEUTICALS INC-2016-001287

PATIENT
  Age: 35 Year
  Sex: Female

DRUGS (2)
  1. BACLOFEN TABLETS [Suspect]
     Active Substance: BACLOFEN
     Route: 048
  2. BACLOFEN TABLETS [Suspect]
     Active Substance: BACLOFEN
     Indication: ALCOHOLISM
     Route: 048
     Dates: start: 20150131, end: 20150131

REACTIONS (2)
  - Toxicity to various agents [Fatal]
  - Completed suicide [Fatal]

NARRATIVE: CASE EVENT DATE: 20150131
